FAERS Safety Report 20722054 (Version 1)
Quarter: 2022Q2

REPORT INFORMATION
  Report Type: Report from Study
  Country: IN (occurrence: IN)
  Receive Date: 20220418
  Receipt Date: 20220418
  Transmission Date: 20220721
  Serious: Yes (Hospitalization, Other)
  Sender: FDA-Public Use
  Company Number: IN-NOVARTISPH-NVSC2021IN185920

PATIENT
  Age: 65 Year
  Sex: Male

DRUGS (2)
  1. SIMULECT [Suspect]
     Active Substance: BASILIXIMAB
     Indication: Renal transplant
     Dosage: 20 MG, UNKNOWN
     Route: 065
     Dates: start: 20210721, end: 20210725
  2. MYCOPHENOLATE MOFETIL [Concomitant]
     Active Substance: MYCOPHENOLATE MOFETIL
     Indication: Product used for unknown indication
     Dosage: UNK
     Route: 065

REACTIONS (16)
  - Kidney transplant rejection [Unknown]
  - Delayed graft function [Unknown]
  - Renal atrophy [Unknown]
  - Transplant rejection [Unknown]
  - Pulmonary oedema [Unknown]
  - Oedematous kidney [Unknown]
  - Renal tubular injury [Unknown]
  - Diaphragmatic disorder [Unknown]
  - Renal cyst [Unknown]
  - Bladder dilatation [Unknown]
  - Hepatic steatosis [Unknown]
  - Chilaiditi^s syndrome [Unknown]
  - Cardiomegaly [Unknown]
  - Blood calcium decreased [Unknown]
  - Blood creatinine increased [Unknown]
  - Blood magnesium decreased [Unknown]

NARRATIVE: CASE EVENT DATE: 20210729
